FAERS Safety Report 21449774 (Version 1)
Quarter: 2022Q4

REPORT INFORMATION
  Report Type: Spontaneous
  Country: IN (occurrence: IN)
  Receive Date: 20221013
  Receipt Date: 20221013
  Transmission Date: 20230113
  Serious: Yes (Hospitalization)
  Sender: FDA-Public Use
  Company Number: IN-STRIDES ARCOLAB LIMITED-2022SP013312

PATIENT
  Sex: Female

DRUGS (8)
  1. NEVIRAPINE [Suspect]
     Active Substance: NEVIRAPINE
     Indication: Prophylaxis against HIV infection
     Dosage: UNK
     Route: 064
  2. NEVIRAPINE [Suspect]
     Active Substance: NEVIRAPINE
     Indication: Product used for unknown indication
     Dosage: UNK
     Route: 063
  3. NEVIRAPINE [Suspect]
     Active Substance: NEVIRAPINE
     Dosage: UNK, SINGLE (POSTNATAL EXPOSURE: SINGLE-DOSE)
     Route: 065
  4. LAMIVUDINE [Suspect]
     Active Substance: LAMIVUDINE
     Indication: Product used for unknown indication
     Dosage: UNK
     Route: 064
  5. LAMIVUDINE [Suspect]
     Active Substance: LAMIVUDINE
     Dosage: UNK
     Route: 063
  6. ZIDOVUDINE [Suspect]
     Active Substance: ZIDOVUDINE
     Indication: Prophylaxis against HIV infection
     Dosage: UNK
     Route: 064
  7. ZIDOVUDINE [Suspect]
     Active Substance: ZIDOVUDINE
     Indication: Product used for unknown indication
     Dosage: UNK
     Route: 063
  8. ZIDOVUDINE [Suspect]
     Active Substance: ZIDOVUDINE
     Dosage: UNK (POSTNATAL EXPOSURE: PROPHYLACTIC TREATMENT FOR 6 WEEKS)
     Route: 065

REACTIONS (12)
  - Metabolic encephalopathy [Recovered/Resolved]
  - Mitochondrial toxicity [Recovered/Resolved]
  - Dystonia [Recovered/Resolved]
  - Nervous system disorder [Recovered/Resolved]
  - Pallor [Unknown]
  - Hypochromic anaemia [Unknown]
  - Anion gap increased [Unknown]
  - Partial seizures [Recovered/Resolved]
  - Metabolic acidosis [Recovered/Resolved]
  - Hepatomegaly [Unknown]
  - Foetal exposure during pregnancy [Unknown]
  - Exposure via breast milk [Unknown]
